FAERS Safety Report 12484974 (Version 1)
Quarter: 2016Q2

REPORT INFORMATION
  Report Type: Spontaneous
  Country: US (occurrence: US)
  Receive Date: 20160621
  Receipt Date: 20160621
  Transmission Date: 20160815
  Serious: No
  Sender: FDA-Public Use
  Company Number: US-GLAXOSMITHKLINE-US2016083219

PATIENT
  Age: 65 Year
  Sex: Female

DRUGS (6)
  1. ASPIRIN (BABY) [Concomitant]
     Active Substance: ASPIRIN
  2. BREO ELLIPTA [Suspect]
     Active Substance: FLUTICASONE FUROATE\VILANTEROL TRIFENATATE
     Indication: DYSPNOEA
     Dosage: 1 PUFF(S), QD
     Route: 055
     Dates: start: 20160606, end: 20160608
  3. ALBUTEROL. [Concomitant]
     Active Substance: ALBUTEROL
  4. CLONAZEPAM. [Concomitant]
     Active Substance: CLONAZEPAM
  5. SINGULAIR [Concomitant]
     Active Substance: MONTELUKAST SODIUM
  6. ACIPHEX [Concomitant]
     Active Substance: RABEPRAZOLE SODIUM

REACTIONS (4)
  - Device use error [Unknown]
  - Oropharyngeal pain [Unknown]
  - Dysphonia [Not Recovered/Not Resolved]
  - Medication residue present [Not Recovered/Not Resolved]

NARRATIVE: CASE EVENT DATE: 20160606
